FAERS Safety Report 9115445 (Version 1)
Quarter: 2013Q1

REPORT INFORMATION
  Report Type: Report from Study
  Country: BE (occurrence: BE)
  Receive Date: 20130225
  Receipt Date: 20130225
  Transmission Date: 20140127
  Serious: Yes (Hospitalization)
  Sender: FDA-Public Use
  Company Number: BE-ABBOTT-12P-013-1027180-00

PATIENT
  Sex: Female

DRUGS (4)
  1. DUODOPA [Suspect]
     Indication: PARKINSON^S DISEASE
     Dosage: AM DOSE=7ML, CONTIN. DOSE=4.5ML/H DURING 16 HOURS, EXTRA DOSE=2ML
     Dates: start: 20100705, end: 20100712
  2. DUODOPA [Suspect]
     Dosage: DOSAGE CONTINOUSLY MONITORED AND ADJUSTED
     Dates: start: 20100712, end: 20120911
  3. DUODOPA [Suspect]
     Dosage: AM DOSE=1,5ML, CONTIN. DOSE=4ML/H DURING 16 HOURS, EXTRA DOSE=1.5ML
     Dates: start: 20120911, end: 20130215
  4. DUODOPA [Suspect]
     Dosage: AM DOSE=1.5ML, CONTIN DOSE=4.2ML/H FOR 16HRS AND EXTRA DOSE=1.5ML
     Dates: start: 20130215

REACTIONS (4)
  - Arthropathy [Recovered/Resolved]
  - Dystonia [Unknown]
  - On and off phenomenon [Unknown]
  - Neuromuscular blockade [Unknown]
